FAERS Safety Report 15461044 (Version 3)
Quarter: 2018Q4

REPORT INFORMATION
  Report Type: Spontaneous
  Country: IT (occurrence: IT)
  Receive Date: 20181003
  Receipt Date: 20181205
  Transmission Date: 20190204
  Serious: Yes (Other)
  Sender: FDA-Public Use
  Company Number: IT-PFIZER INC-2018395437

PATIENT
  Age: 80 Year
  Sex: Male

DRUGS (10)
  1. ALDACTONE [Concomitant]
     Active Substance: SPIRONOLACTONE
     Dosage: UNK
  2. LASIX [Concomitant]
     Active Substance: FUROSEMIDE
     Dosage: 25 MG, UNK
  3. CARDIOASPIRIN [Concomitant]
     Active Substance: ASPIRIN
     Dosage: 100 MG, UNK
  4. TORVAST [Concomitant]
     Active Substance: ATORVASTATIN
     Dosage: 40 MG, UNK
  5. DILATREND [Concomitant]
     Active Substance: CARVEDILOL
     Dosage: UNK
  6. TRIATEC (RAMIPRIL) [Suspect]
     Active Substance: RAMIPRIL
     Indication: HYPERTENSION
     Dosage: 2.5 MG, DAILY
     Route: 048
     Dates: start: 20170814, end: 20180725
  7. ANTRA [OMEPRAZOLE MAGNESIUM] [Concomitant]
     Dosage: UNK
  8. NICETILE [Concomitant]
     Active Substance: ACETYLCARNITINE HYDROCHLORIDE
     Dosage: UNK
  9. AMIODAR [Concomitant]
     Active Substance: AMIODARONE
     Dosage: 200 MG, UNK
  10. INSULIN [Concomitant]
     Active Substance: INSULIN NOS
     Dosage: UNK

REACTIONS (2)
  - Loss of consciousness [Recovered/Resolved]
  - Hypotension [Recovered/Resolved]

NARRATIVE: CASE EVENT DATE: 20180725
